FAERS Safety Report 22117963 (Version 1)
Quarter: 2023Q1

REPORT INFORMATION
  Report Type: Spontaneous
  Country: US (occurrence: None)
  Receive Date: 20230321
  Receipt Date: 20230321
  Transmission Date: 20230417
  Serious: Yes (Other)
  Sender: FDA-Public Use
  Company Number: US-ROCHE-3212370

PATIENT
  Sex: Female

DRUGS (1)
  1. VABYSMO [Suspect]
     Active Substance: FARICIMAB-SVOA
     Indication: Neovascular age-related macular degeneration
     Route: 065

REACTIONS (5)
  - Vitreous floaters [Unknown]
  - Visual impairment [Unknown]
  - Endophthalmitis [Unknown]
  - Anterior chamber inflammation [Unknown]
  - Intraocular pressure increased [Unknown]
